FAERS Safety Report 7846772 (Version 3)
Quarter: 2012Q4

REPORT INFORMATION
  Report Type: 
  Country: US (occurrence: US)
  Receive Date: 20110308
  Receipt Date: 20121016
  Transmission Date: 20130627
  Serious: Yes (Death)
  Sender: FDA-Public Use
  Company Number: US-PURDUE-USA-2011-0064711

PATIENT
  Age: 50 None
  Sex: Female

DRUGS (5)
  1. OXYCODONE HYDROCHLORIDE (SIMILAR TO NDA 20-553) [Suspect]
     Indication: PRODUCT USED FOR UNKNOWN INDICATION
  2. VALIUM                             /00017001/ [Suspect]
     Indication: PRODUCT USED FOR UNKNOWN INDICATION
  3. LORTAB                             /00607101/ [Suspect]
     Indication: PRODUCT USED FOR UNKNOWN INDICATION
  4. AMBIEN [Suspect]
     Indication: PRODUCT USED FOR UNKNOWN INDICATION
  5. PROMETHAZINE [Suspect]
     Indication: PRODUCT USED FOR UNKNOWN INDICATION

REACTIONS (1)
  - Death [Fatal]
